FAERS Safety Report 8313561-7 (Version None)
Quarter: 2012Q1

REPORT INFORMATION
  Report Type: 
  Country: None (occurrence: None)
  Receive Date: 20120315
  Receipt Date: 20110428
  Transmission Date: 20120608
  Serious: No
  Sender: FDA-Public Use
  Company Number: PHHY2011US22446

PATIENT
  Age: 60 Year
  Sex: Female
  Weight: 54.4 kg

DRUGS (3)
  1. PROVIGIL [Concomitant]
  2. GILENYA [Suspect]
     Indication: MULTIPLE SCLEROSIS
     Dosage: 0.5 MG. QD, ORAL
     Route: 048
     Dates: start: 20110228
  3. OXYCONTIN [Concomitant]

REACTIONS (3)
  - FATIGUE [None]
  - DEPRESSION [None]
  - HEADACHE [None]
